FAERS Safety Report 6041778-3 (Version None)
Quarter: 2009Q1

REPORT INFORMATION
  Report Type: 
  Country: None (occurrence: None)
  Receive Date: 20090116
  Receipt Date: 20090107
  Transmission Date: 20090719
  Serious: Yes (Hospitalization, Other)
  Sender: FDA-Public Use
  Company Number: FR-PFIZER INC-2009153488

PATIENT

DRUGS (10)
  1. NEURONTIN [Suspect]
     Dosage: UNK
     Route: 048
     Dates: start: 20071115
  2. VAXIGRIP [Suspect]
     Dosage: UNK
     Dates: start: 20071205
  3. APROVEL [Concomitant]
     Dosage: UNK
  4. FLECAINE [Concomitant]
     Dosage: UNK
  5. DELURSAN [Concomitant]
     Dosage: UNK
  6. PROSCAR [Concomitant]
     Dosage: UNK
  7. DYSALFA [Concomitant]
     Dosage: UNK
  8. PRAZEPAM [Concomitant]
     Dosage: UNK
  9. NOVONORM [Concomitant]
     Dosage: UNK
  10. STEROGYL [Concomitant]
     Dosage: UNK

REACTIONS (3)
  - MUSCULAR WEAKNESS [None]
  - NEUROGENIC BLADDER [None]
  - PARAESTHESIA [None]
